FAERS Safety Report 8023311-X (Version None)
Quarter: 2012Q1

REPORT INFORMATION
  Report Type: 
  Country: None (occurrence: None)
  Receive Date: 20120104
  Receipt Date: 20120102
  Transmission Date: 20120608
  Serious: Yes (Life-Threatening, Hospitalization)
  Sender: FDA-Public Use
  Company Number: FR-ROCHE-1026946

PATIENT
  Sex: Male

DRUGS (7)
  1. MABTHERA [Suspect]
     Indication: LYMPHOPLASMACYTOID LYMPHOMA/IMMUNOCYTOMA
     Route: 042
     Dates: start: 20110629, end: 20111012
  2. PLAVIX [Concomitant]
     Dates: start: 20090101
  3. ZESTRIL [Concomitant]
     Dates: start: 20090101
  4. ATORVASTATIN CALCIUM [Concomitant]
     Dosage: TAHOR 10
     Dates: start: 20090101
  5. VALACYCLOVIR HYDROCHLORIDE [Concomitant]
     Dates: start: 20110713
  6. FERROUS SULFATE TAB [Concomitant]
     Dates: start: 20110713
  7. CHLORPHENIRAMINE MALEATE [Concomitant]
     Route: 002

REACTIONS (8)
  - MALAISE [None]
  - ABDOMINAL PAIN [None]
  - URTICARIA [None]
  - HYPOTENSION [None]
  - CYANOSIS [None]
  - LOSS OF CONSCIOUSNESS [None]
  - PULSE ABSENT [None]
  - NAUSEA [None]
